FAERS Safety Report 5333900-9 (Version None)
Quarter: 2007Q2

REPORT INFORMATION
  Report Type: 
  Country: None (occurrence: None)
  Receive Date: 20070524
  Receipt Date: 20070517
  Transmission Date: 20071010
  Serious: Yes (Other)
  Sender: FDA-Public Use
  Company Number: US-ASTRAZENECA-2007UW12323

PATIENT
  Age: 60 Year
  Sex: Female

DRUGS (4)
  1. SEROQUEL [Suspect]
     Route: 048
     Dates: start: 20070401
  2. SEROQUEL [Suspect]
     Route: 048
  3. CRESTOR [Concomitant]
     Route: 048
  4. NEXIUM [Concomitant]
     Route: 048

REACTIONS (3)
  - DYSARTHRIA [None]
  - PARAESTHESIA ORAL [None]
  - VISUAL DISTURBANCE [None]
